FAERS Safety Report 11696950 (Version 1)
Quarter: 2015Q4

REPORT INFORMATION
  Report Type: Spontaneous
  Country: FR (occurrence: FR)
  Receive Date: 20151104
  Receipt Date: 20151104
  Transmission Date: 20160304
  Serious: Yes (Hospitalization)
  Sender: FDA-Public Use
  Company Number: FR-ASTRAZENECA-2015SF04635

PATIENT
  Age: 5743 Day
  Sex: Male

DRUGS (6)
  1. OROCAL [Concomitant]
     Active Substance: CALCIUM CARBONATE
     Indication: HYPOPARATHYROIDISM SECONDARY
  2. SOLUPRED [Suspect]
     Active Substance: PREDNISOLONE
     Indication: LARYNGOSCOPY
     Route: 048
     Dates: start: 20150724
  3. UN-ALFA [Concomitant]
     Active Substance: ALFACALCIDOL
     Indication: HYPOPARATHYROIDISM SECONDARY
  4. UVEDOSE [Concomitant]
     Active Substance: CHOLECALCIFEROL
     Indication: HYPOPARATHYROIDISM SECONDARY
  5. LEVOTHYROX [Concomitant]
     Active Substance: LEVOTHYROXINE
     Route: 048
  6. INEXIUM [Suspect]
     Active Substance: ESOMEPRAZOLE
     Indication: LARYNGOSCOPY
     Route: 048
     Dates: start: 20150724

REACTIONS (3)
  - Condition aggravated [Recovered/Resolved]
  - Hypocalcaemia [Recovered/Resolved]
  - Paraesthesia [Recovering/Resolving]

NARRATIVE: CASE EVENT DATE: 20150724
